FAERS Safety Report 8791627 (Version 2)
Quarter: 2012Q4

REPORT INFORMATION
  Report Type: 
  Country: DE (occurrence: DE)
  Receive Date: 20120918
  Receipt Date: 20121030
  Transmission Date: 20130627
  Serious: Yes (Other)
  Sender: FDA-Public Use
  Company Number: DE-PFIZER INC-2012227545

PATIENT
  Age: 67 Year
  Sex: Male
  Weight: 92 kg

DRUGS (4)
  1. SORTIS [Suspect]
     Indication: BLOOD CHOLESTEROL INCREASED
     Dosage: 10 mg, daily
     Dates: start: 2008
  2. ASS 100 [Concomitant]
     Indication: PROPHYLAXIS
     Dosage: 100 mg, 1x/day
  3. JANUVIA [Concomitant]
     Indication: DIABETES MELLITUS
     Dosage: 100 mg, 1x/day
  4. ATACAND [Concomitant]
     Indication: BLOOD PRESSURE
     Dosage: 16 mg, 1x/day

REACTIONS (1)
  - Cardiac flutter [Unknown]
